FAERS Safety Report 17983450 (Version 1)
Quarter: 2020Q3

REPORT INFORMATION
  Report Type: Spontaneous
  Country: US (occurrence: US)
  Receive Date: 20200703
  Receipt Date: 20200703
  Transmission Date: 20201103
  Serious: Yes (Other)
  Sender: FDA-Public Use
  Company Number: None

PATIENT
  Age: 38 Year
  Sex: Female
  Weight: 58.5 kg

DRUGS (3)
  1. HCG [Suspect]
     Active Substance: GONADOTROPHIN, CHORIONIC
     Indication: DEPENDENCE
     Route: 058
     Dates: start: 20200501, end: 20200617
  2. HCG [Suspect]
     Active Substance: GONADOTROPHIN, CHORIONIC
     Indication: WEIGHT DECREASED
     Route: 058
     Dates: start: 20200501, end: 20200617
  3. EC2 SPRAY [ETHYL CHLORIDE] [Suspect]
     Active Substance: ETHYL CHLORIDE

REACTIONS (3)
  - Anxiety [None]
  - Near death experience [None]
  - Alopecia [None]

NARRATIVE: CASE EVENT DATE: 20200501
